FAERS Safety Report 8938939 (Version 1)
Quarter: 2012Q4

REPORT INFORMATION
  Report Type: 
  Country: US (occurrence: US)
  Receive Date: 20121203
  Receipt Date: 20121203
  Transmission Date: 20130627
  Serious: No
  Sender: FDA-Public Use
  Company Number: US-009507513-1211USA012776

PATIENT

DRUGS (1)
  1. NASONEX [Suspect]
     Dosage: 50 microgram 1 standard dose of 17, 1 spray in each nostril
     Route: 055
     Dates: start: 20121116

REACTIONS (3)
  - Drug dose omission [Unknown]
  - Product quality issue [Unknown]
  - No adverse event [Unknown]
